FAERS Safety Report 15439021 (Version 1)
Quarter: 2018Q3

REPORT INFORMATION
  Report Type: Spontaneous
  Country: US (occurrence: US)
  Receive Date: 20180928
  Receipt Date: 20180928
  Transmission Date: 20181010
  Serious: No
  Sender: FDA-Public Use
  Company Number: US-PFIZER INC-2018386963

PATIENT
  Age: 22 Year
  Sex: Female

DRUGS (1)
  1. GENOTROPIN MQ [Suspect]
     Active Substance: SOMATROPIN
     Indication: BLOOD GROWTH HORMONE ABNORMAL
     Dosage: 0.2 MG, DAILY
     Dates: start: 201208

REACTIONS (2)
  - Bone density decreased [Unknown]
  - Insulin-like growth factor decreased [Unknown]

NARRATIVE: CASE EVENT DATE: 20171219
